FAERS Safety Report 19027055 (Version 1)
Quarter: 2021Q1

REPORT INFORMATION
  Report Type: Spontaneous
  Country: JP (occurrence: JP)
  Receive Date: 20210318
  Receipt Date: 20210318
  Transmission Date: 20210420
  Serious: Yes (Other)
  Sender: FDA-Public Use
  Company Number: JP-ORGANON-O2103USA002094

PATIENT
  Age: 43 Year
  Sex: Female

DRUGS (1)
  1. KIPRES [Suspect]
     Active Substance: MONTELUKAST SODIUM
     Dosage: UNK
     Route: 048
     Dates: start: 201510, end: 201511

REACTIONS (1)
  - Drug eruption [Unknown]
